FAERS Safety Report 8380466-5 (Version None)
Quarter: 2012Q2

REPORT INFORMATION
  Report Type: 
  Country: None (occurrence: None)
  Receive Date: 20120523
  Receipt Date: 20120516
  Transmission Date: 20120825
  Serious: Yes (Hospitalization)
  Sender: FDA-Public Use
  Company Number: JP-GLAXOSMITHKLINE-B0673286A

PATIENT
  Sex: Female
  Weight: 30 kg

DRUGS (11)
  1. LOXONIN [Concomitant]
     Route: 065
  2. SELBEX [Concomitant]
     Route: 048
  3. ASPARA-CA [Concomitant]
     Route: 065
  4. VALTREX [Suspect]
     Indication: HERPES ZOSTER
     Dosage: 3000MG PER DAY
     Route: 048
     Dates: start: 20100730, end: 20100806
  5. CANDESARTAN CILEXETIL [Concomitant]
     Route: 048
  6. DEPAS [Concomitant]
     Route: 048
  7. FRANDOL S [Concomitant]
     Route: 062
  8. ADALAT CC [Concomitant]
     Route: 048
  9. CHINESE MEDICINE [Concomitant]
     Route: 048
  10. MAGNESIUM OXIDE [Concomitant]
     Route: 048
  11. CEFAZOLIN SODIUM [Concomitant]
     Route: 048

REACTIONS (11)
  - COMMUNICATION DISORDER [None]
  - BLOOD UREA INCREASED [None]
  - LISTLESS [None]
  - HYPOKINESIA [None]
  - ALTERED STATE OF CONSCIOUSNESS [None]
  - RENAL FAILURE [None]
  - PNEUMONIA ASPIRATION [None]
  - DECREASED APPETITE [None]
  - HYPOGLYCAEMIA [None]
  - DEHYDRATION [None]
  - BLOOD CREATININE INCREASED [None]
